FAERS Safety Report 15623275 (Version 1)
Quarter: 2018Q4

REPORT INFORMATION
  Report Type: Spontaneous
  Country: US (occurrence: US)
  Receive Date: 20181115
  Receipt Date: 20181115
  Transmission Date: 20190205
  Serious: Yes (Hospitalization)
  Sender: FDA-Public Use
  Company Number: US-INDIVIOR LIMITED-INDV-115654-2018

PATIENT

DRUGS (1)
  1. BUPRENORPHINE. [Suspect]
     Active Substance: BUPRENORPHINE
     Indication: SUBSTANCE USE DISORDER
     Dosage: UNK
     Route: 051

REACTIONS (2)
  - Intentional product use issue [Unknown]
  - Endocarditis [Unknown]
